FAERS Safety Report 14274010 (Version 2)
Quarter: 2018Q4

REPORT INFORMATION
  Report Type: Spontaneous
  Country: US (occurrence: US)
  Receive Date: 20171211
  Receipt Date: 20181210
  Transmission Date: 20190204
  Serious: Yes (Hospitalization, Other)
  Sender: FDA-Public Use
  Company Number: US-OTSUKA-2017_018748

PATIENT
  Age: 41 Year
  Sex: Male

DRUGS (6)
  1. ABILIFY [Suspect]
     Active Substance: ARIPIPRAZOLE
     Indication: PRODUCT USED FOR UNKNOWN INDICATION
     Dosage: 30 MG, UNK
     Route: 065
     Dates: start: 2009, end: 2015
  2. ABILIFY [Suspect]
     Active Substance: ARIPIPRAZOLE
     Indication: PRODUCT USED FOR UNKNOWN INDICATION
     Dosage: 15 MG, UNK
     Route: 065
     Dates: start: 2006, end: 2009
  3. ARIPIPRAZOLE. [Concomitant]
     Active Substance: ARIPIPRAZOLE
     Indication: PRODUCT USED FOR UNKNOWN INDICATION
     Dosage: UNK
     Route: 065
     Dates: start: 20150731, end: 20170401
  4. ABILIFY [Suspect]
     Active Substance: ARIPIPRAZOLE
     Indication: BIPOLAR DISORDER
     Dosage: UNK MG, UNK
     Route: 065
     Dates: start: 2002
  5. ABILIFY [Suspect]
     Active Substance: ARIPIPRAZOLE
     Indication: PRODUCT USED FOR UNKNOWN INDICATION
     Dosage: 5 MG, UNK
     Route: 065
     Dates: start: 2006, end: 2009
  6. ABILIFY [Suspect]
     Active Substance: ARIPIPRAZOLE
     Indication: PRODUCT USED FOR UNKNOWN INDICATION
     Dosage: 10 MG, UNK
     Route: 065
     Dates: start: 2006, end: 2009

REACTIONS (13)
  - Loss of employment [Unknown]
  - Obsessive-compulsive disorder [Unknown]
  - Emotional distress [Unknown]
  - Suicide attempt [Unknown]
  - Impulsive behaviour [Unknown]
  - Suicidal ideation [Unknown]
  - Weight increased [Unknown]
  - Economic problem [Unknown]
  - Hospitalisation [Unknown]
  - Gambling disorder [Recovered/Resolved]
  - Brain injury [Unknown]
  - Condition aggravated [Recovered/Resolved]
  - Impulse-control disorder [Unknown]

NARRATIVE: CASE EVENT DATE: 200404
